FAERS Safety Report 14240509 (Version 3)
Quarter: 2021Q1

REPORT INFORMATION
  Report Type: Spontaneous
  Country: ZA (occurrence: ZA)
  Receive Date: 20171130
  Receipt Date: 20210105
  Transmission Date: 20210419
  Serious: Yes (Other)
  Sender: FDA-Public Use
  Company Number: ZA-SA-2017SA231386

PATIENT

DRUGS (7)
  1. CELECOXIB. [Suspect]
     Active Substance: CELECOXIB
     Dosage: 200 MG, BID
     Dates: start: 20080917
  2. SULFASALAZINE. [Suspect]
     Active Substance: SULFASALAZINE
     Dosage: 2 G,QD
     Route: 065
     Dates: start: 20170428
  3. METHOTREXATE. [Suspect]
     Active Substance: METHOTREXATE
     Dosage: 25 MG,QW
     Route: 058
     Dates: start: 20080917
  4. PREDNISONE. [Suspect]
     Active Substance: PREDNISONE
     Dosage: UNK UNK,UNK
     Route: 065
  5. ENBREL [Suspect]
     Active Substance: ETANERCEPT
     Dosage: 50 MG,QW
     Route: 058
     Dates: start: 20140118
  6. CHLOROQUINE SULFATE [Suspect]
     Active Substance: CHLOROQUINE SULFATE
     Dosage: UNK UNK,UNK
     Route: 065
  7. ARAVA [Suspect]
     Active Substance: LEFLUNOMIDE
     Dosage: 20 MG,QD
     Route: 048
     Dates: start: 20100414

REACTIONS (3)
  - Nephrolithiasis [Recovered/Resolved]
  - Rheumatoid arthritis [Recovered/Resolved]
  - Drug ineffective [Unknown]

NARRATIVE: CASE EVENT DATE: 201707
